FAERS Safety Report 12334951 (Version 2)
Quarter: 2016Q2

REPORT INFORMATION
  Report Type: Spontaneous
  Country: DE (occurrence: DE)
  Receive Date: 20160504
  Receipt Date: 20160511
  Transmission Date: 20160815
  Serious: Yes (Other)
  Sender: FDA-Public Use
  Company Number: DE-UNITED THERAPEUTICS-UNT-2016-006635

PATIENT
  Age: 67 Year
  Sex: Male
  Weight: 98 kg

DRUGS (1)
  1. REMODULIN [Suspect]
     Active Substance: TREPROSTINIL
     Indication: PRODUCT USED FOR UNKNOWN INDICATION
     Dosage: 21.3 ?G/KG, CONTINUING
     Route: 058
     Dates: start: 20160104

REACTIONS (4)
  - Systemic infection [Unknown]
  - Pyrexia [Not Recovered/Not Resolved]
  - Treatment noncompliance [Unknown]
  - Diarrhoea [Not Recovered/Not Resolved]

NARRATIVE: CASE EVENT DATE: 201604
